FAERS Safety Report 5796396-9 (Version None)
Quarter: 2008Q2

REPORT INFORMATION
  Report Type: 
  Country: None (occurrence: None)
  Receive Date: 20080630
  Receipt Date: 20080630
  Transmission Date: 20081010
  Serious: Yes (Other)
  Sender: FDA-Public Use
  Company Number: None

PATIENT
  Sex: Male
  Weight: 76.2043 kg

DRUGS (4)
  1. CHANTIX [Suspect]
     Indication: SMOKING CESSATION THERAPY
     Dosage: 0.5MG DAILY X3:BID X4 PO, 1MG
     Route: 048
     Dates: start: 20080614, end: 20080621
  2. CHANTIX [Suspect]
     Indication: TOBACCO ABUSE
     Dosage: 0.5MG DAILY X3:BID X4 PO, 1MG
     Route: 048
     Dates: start: 20080614, end: 20080621
  3. CHANTIX [Suspect]
     Indication: SMOKING CESSATION THERAPY
     Dosage: 0.5MG DAILY X3:BID X4 PO, 1MG
     Route: 048
     Dates: start: 20080621, end: 20080627
  4. CHANTIX [Suspect]
     Indication: TOBACCO ABUSE
     Dosage: 0.5MG DAILY X3:BID X4 PO, 1MG
     Route: 048
     Dates: start: 20080621, end: 20080627

REACTIONS (7)
  - DISTURBANCE IN ATTENTION [None]
  - IMPAIRED DRIVING ABILITY [None]
  - IMPAIRED WORK ABILITY [None]
  - INSOMNIA [None]
  - IRRITABILITY [None]
  - MOOD SWINGS [None]
  - NIGHTMARE [None]
